FAERS Safety Report 12991958 (Version 2)
Quarter: 2016Q4

REPORT INFORMATION
  Report Type: Spontaneous
  Country: US (occurrence: US)
  Receive Date: 20161201
  Receipt Date: 20161214
  Transmission Date: 20170207
  Serious: Yes (Hospitalization, Other)
  Sender: FDA-Public Use
  Company Number: US-SAOL THERAPEUTICS-2016SAO01134

PATIENT
  Age: 38 Year
  Sex: Male

DRUGS (27)
  1. BONIVA [Concomitant]
     Active Substance: IBANDRONATE SODIUM
     Dosage: 150 MG, 1X/MONTH
  2. CLARITIN [Concomitant]
     Active Substance: LORATADINE
     Dosage: 10 MG, 1X/DAY
  3. BACLOFEN. [Suspect]
     Active Substance: BACLOFEN
     Dosage: 200 ?G, \DAY
     Route: 037
  4. NEXIUM [Concomitant]
     Active Substance: ESOMEPRAZOLE MAGNESIUM
     Dosage: 40 MG, \DAY
     Dates: end: 20080324
  5. MULTICLENS [Concomitant]
     Dosage: 3 CAPSULES, UNK
     Route: 048
  6. OXYBUTYNIN [Concomitant]
     Active Substance: OXYBUTYNIN
     Dosage: 5 MG, 3X/DAY
     Route: 048
  7. TYLENOL [Concomitant]
     Active Substance: ACETAMINOPHEN
     Dosage: UNK, AS NEEDED
  8. FERROUS GLUCONATE [Concomitant]
     Active Substance: FERROUS GLUCONATE
     Dosage: 250 MG, 2X/DAY
     Route: 048
  9. REGLAN [Concomitant]
     Active Substance: METOCLOPRAMIDE HYDROCHLORIDE
     Dosage: 20 MG, \DAY
     Route: 048
  10. INSULIN [Concomitant]
     Active Substance: INSULIN NOS
  11. MACROBID [Concomitant]
     Active Substance: NITROFURANTOIN\NITROFURANTOIN MONOHYDRATE
     Dosage: 100 MG, AS NEEDED
  12. VARIETY OF PRNS [Concomitant]
     Dosage: UNK
  13. LEVOTHYROXINE. [Concomitant]
     Active Substance: LEVOTHYROXINE
     Dosage: 50 ?G, \DAY
  14. CRANBERRY TABLET [Concomitant]
     Dosage: 2 TABLETS, 2X/DAY
     Route: 048
  15. OMEGA-3 CAPSULES [Concomitant]
     Dosage: UNK, 3X/DAY
  16. VITAMINS AND MINERALS [Concomitant]
     Dosage: UNK
  17. DOSS [Concomitant]
     Active Substance: DOCUSATE SODIUM
     Dosage: 100 MG, 2X/DAY
     Route: 048
  18. BACLOFEN. [Concomitant]
     Active Substance: BACLOFEN
     Dosage: 10 MG, \DAY
     Route: 048
  19. LANTUS [Concomitant]
     Active Substance: INSULIN GLARGINE
     Dosage: 29 UNITS, 1X/DAY
     Route: 058
  20. CHLORPHENIRAMINE. [Concomitant]
     Active Substance: CHLORPHENIRAMINE
     Dosage: 8 MG, 2X/DAY
     Route: 048
  21. ACIDOPHILUS TABLET [Concomitant]
     Dosage: 1 TABLETS, 3X/DAY
     Route: 048
  22. MILK OF MAGNESIA [Concomitant]
     Active Substance: MAGNESIUM HYDROXIDE
     Dosage: 30 ML, AS NEEDED
  23. VALIUM [Concomitant]
     Active Substance: DIAZEPAM
     Dosage: 5 MG, AS NEEDED
     Route: 048
  24. FLUDROCORTISONE [Concomitant]
     Active Substance: FLUDROCORTISONE
     Dosage: .2 MG, \DAY
  25. CALCIUM [Concomitant]
     Active Substance: CALCIUM
  26. ASPIRIN. [Concomitant]
     Active Substance: ASPIRIN
     Dosage: 81 MG, 1X/DAY
  27. SENOKOT [Concomitant]
     Active Substance: SENNOSIDES
     Dosage: 1 TABLETS, UNK
     Route: 048

REACTIONS (6)
  - Implant site infection [Recovered/Resolved]
  - Oedema peripheral [Recovered/Resolved]
  - Streptococcus test positive [Recovered/Resolved]
  - Muscle spasticity [Recovered/Resolved]
  - Hypokalaemia [Recovered/Resolved]
  - Haematocrit decreased [Unknown]

NARRATIVE: CASE EVENT DATE: 200803
